FAERS Safety Report 8274141-5 (Version None)
Quarter: 2012Q2

REPORT INFORMATION
  Report Type: 
  Country: None (occurrence: None)
  Receive Date: 20120406
  Receipt Date: 20120406
  Transmission Date: 20120825
  Serious: Yes (Hospitalization)
  Sender: FDA-Public Use
  Company Number: None

PATIENT
  Age: 43 Year
  Sex: Female
  Weight: 57.9697 kg

DRUGS (7)
  1. FULVESTRANT [Suspect]
     Indication: BREAST CANCER METASTATIC
     Dosage: 250 MG IM
     Route: 030
     Dates: start: 20120208
  2. LISINOPRIL [Concomitant]
  3. RAD001 (EVEROLIMUS 5MG), NOVARTIS [Suspect]
     Indication: BREAST CANCER METASTATIC
     Dosage: 10 MG PO QD
     Route: 048
     Dates: start: 20120208
  4. EFFEXOR [Concomitant]
  5. ZOLPIDEM [Concomitant]
  6. HYDROXYZINE HCL [Concomitant]
  7. LORATADINE [Concomitant]

REACTIONS (5)
  - LOBAR PNEUMONIA [None]
  - LYMPHANGIOSIS CARCINOMATOSA [None]
  - TOXICITY TO VARIOUS AGENTS [None]
  - PERFORMANCE STATUS DECREASED [None]
  - HEPATIC LESION [None]
